FAERS Safety Report 20966341 (Version 1)
Quarter: 2022Q2

REPORT INFORMATION
  Report Type: Report from Study
  Country: CA (occurrence: CA)
  Receive Date: 20220616
  Receipt Date: 20220616
  Transmission Date: 20220720
  Serious: Yes (Other)
  Sender: FDA-Public Use
  Company Number: CA-LEO Pharma-342798

PATIENT
  Age: 20 Year
  Sex: Female

DRUGS (3)
  1. DEVICE [Suspect]
     Active Substance: DEVICE
     Indication: Dermatitis atopic
  2. TRALOKINUMAB [Suspect]
     Active Substance: TRALOKINUMAB
     Indication: Dermatitis atopic
     Dates: start: 20220513
  3. DUPILUMAB [Concomitant]
     Active Substance: DUPILUMAB
     Indication: Product used for unknown indication
     Dosage: DUPILUMAB THAT WAS STOPPED 2 WEEKS PRIOR TO THE ADTRALZA INJECTIONS

REACTIONS (10)
  - Nausea [Recovered/Resolved]
  - Hot flush [Recovered/Resolved]
  - Loss of consciousness [Recovered/Resolved]
  - Vomiting [Recovered/Resolved]
  - Hot flush [Recovered/Resolved]
  - Nausea [Recovered/Resolved]
  - Asthenia [Unknown]
  - Loss of consciousness [Recovered/Resolved]
  - Vomiting [Recovered/Resolved]
  - Asthenia [Unknown]

NARRATIVE: CASE EVENT DATE: 20220513
